FAERS Safety Report 16988229 (Version 1)
Quarter: 2019Q4

REPORT INFORMATION
  Report Type: Spontaneous
  Country: US (occurrence: US)
  Receive Date: 20190919
  Receipt Date: 20190919
  Transmission Date: 20200122
  Serious: Yes (Disabling)
  Sender: FDA-Public Use
  Company Number: None

PATIENT
  Age: 30 Year
  Sex: Male

DRUGS (1)
  1. FLUOXETINE HYDROCHLORIDE. [Suspect]
     Active Substance: FLUOXETINE HYDROCHLORIDE
     Indication: BIPOLAR DISORDER
     Dosage: ?          QUANTITY:30 DF DOSAGE FORM;?
     Route: 048
     Dates: start: 20140312, end: 20190603

REACTIONS (14)
  - Mood altered [None]
  - Tremor [None]
  - Weight decreased [None]
  - Muscular weakness [None]
  - Libido decreased [None]
  - Nausea [None]
  - Increased tendency to bruise [None]
  - Sexual dysfunction [None]
  - Insomnia [None]
  - Dizziness [None]
  - Vomiting [None]
  - Headache [None]
  - Paraesthesia [None]
  - Muscle spasms [None]

NARRATIVE: CASE EVENT DATE: 20190913
